FAERS Safety Report 8426207-4 (Version None)
Quarter: 2012Q2

REPORT INFORMATION
  Report Type: 
  Country: None (occurrence: None)
  Receive Date: 20120611
  Receipt Date: 20120531
  Transmission Date: 20120825
  Serious: Yes (Hospitalization)
  Sender: FDA-Public Use
  Company Number: JP-VERTEX PHARMACEUTICALS INC.-AE-2012-008342

PATIENT
  Age: 66 Year
  Sex: Male

DRUGS (11)
  1. PEG-INTRON [Concomitant]
     Indication: HEPATITIS C
     Route: 051
     Dates: start: 20120411, end: 20120425
  2. RIBAVIRIN [Concomitant]
     Route: 048
     Dates: start: 20120426, end: 20120427
  3. RIBAVIRIN [Concomitant]
     Route: 048
     Dates: start: 20120430, end: 20120502
  4. RIBAVIRIN [Concomitant]
     Route: 048
     Dates: start: 20120515
  5. RIBAVIRIN [Concomitant]
     Route: 048
     Dates: start: 20120428, end: 20120429
  6. PEG-INTRON [Concomitant]
     Route: 051
     Dates: start: 20120523, end: 20120523
  7. PEG-INTRON [Concomitant]
     Route: 051
     Dates: start: 20120510, end: 20120516
  8. TELAVIC (TELAPREVIR) [Suspect]
     Indication: HEPATITIS C
     Route: 048
     Dates: start: 20120411, end: 20120418
  9. TELAVIC (TELAPREVIR) [Suspect]
     Route: 048
     Dates: start: 20120419, end: 20120503
  10. PEG-INTRON [Concomitant]
     Route: 051
     Dates: start: 20120530
  11. RIBAVIRIN [Concomitant]
     Indication: HEPATITIS C
     Route: 048
     Dates: start: 20120411, end: 20120425

REACTIONS (12)
  - MALAISE [None]
  - DEPRESSION [None]
  - PRURITUS [None]
  - HYPERURICAEMIA [None]
  - TREMOR [None]
  - RENAL DISORDER [None]
  - ERYTHEMA [None]
  - THROMBOTIC MICROANGIOPATHY [None]
  - NAUSEA [None]
  - HYPERKALAEMIA [None]
  - DECREASED APPETITE [None]
  - ANAEMIA [None]
